FAERS Safety Report 21310763 (Version 1)
Quarter: 2022Q3

REPORT INFORMATION
  Report Type: Other
  Country: IT (occurrence: IT)
  Receive Date: 20220909
  Receipt Date: 20220909
  Transmission Date: 20221027
  Serious: Yes (Other)
  Sender: FDA-Public Use
  Company Number: None

PATIENT
  Age: 72 Year
  Sex: Male

DRUGS (9)
  1. DUTASTERIDE [Suspect]
     Active Substance: DUTASTERIDE
     Indication: Benign prostatic hyperplasia
     Dosage: UNK
     Route: 065
  2. ETHAMBUTOL [Suspect]
     Active Substance: ETHAMBUTOL HYDROCHLORIDE
     Indication: Mycobacterium kansasii infection
     Dosage: 400 MILLIGRAM, EVERY 8 HOURS
     Route: 065
  3. OLMESARTAN MEDOXOMIL [Suspect]
     Active Substance: OLMESARTAN MEDOXOMIL
     Indication: Hypertension
     Dosage: UNK
     Route: 065
  4. RIFAMPIN [Suspect]
     Active Substance: RIFAMPIN
     Indication: Mycobacterium kansasii infection
     Dosage: 300 MILLIGRAM, BID
     Route: 065
  5. HYDROCHLOROTHIAZIDE [Suspect]
     Active Substance: HYDROCHLOROTHIAZIDE
     Indication: Hypertension
     Dosage: UNK
     Route: 065
  6. ADALIMUMAB [Suspect]
     Active Substance: ADALIMUMAB
     Indication: Psoriatic arthropathy
     Dosage: 40 MILLIGRAM; ONCE EVERY 2 WEEK
     Route: 058
     Dates: start: 201604
  7. ADALIMUMAB [Suspect]
     Active Substance: ADALIMUMAB
     Indication: Psoriasis
  8. TAMSULOSIN [Suspect]
     Active Substance: TAMSULOSIN
     Indication: Benign prostatic hyperplasia
     Dosage: UNK
     Route: 065
  9. ISONIAZID [Suspect]
     Active Substance: ISONIAZID
     Indication: Mycobacterium kansasii infection
     Dosage: 300 MILLIGRAM, QD
     Route: 065

REACTIONS (2)
  - Psoriatic arthropathy [Recovered/Resolved]
  - Mycobacterium kansasii infection [Recovered/Resolved]

NARRATIVE: CASE EVENT DATE: 20160901
